FAERS Safety Report 4767732-7 (Version None)
Quarter: 2005Q3

REPORT INFORMATION
  Report Type: 
  Country: None (occurrence: None)
  Receive Date: 20050912
  Receipt Date: 20050906
  Transmission Date: 20060218
  Serious: Yes (Death)
  Sender: FDA-Public Use
  Company Number: A044-002-005745

PATIENT
  Age: 65 Year
  Sex: Male

DRUGS (5)
  1. ARICEPT [Suspect]
     Indication: DEMENTIA ALZHEIMER'S TYPE
     Dosage: 5 MG, 1 IN 1 D, ORAL
     Route: 048
     Dates: start: 20050701, end: 20050830
  2. FLUOXETIN (FLUOXETINE) [Concomitant]
  3. NATRII VALPROAS (VALPROATE SODIUM) [Concomitant]
  4. LEVETIRACETAM [Concomitant]
  5. CLONAZEPAM [Concomitant]

REACTIONS (2)
  - CARDIAC DISORDER [None]
  - CHEST PAIN [None]
